FAERS Safety Report 7169846-3 (Version None)
Quarter: 2010Q4

REPORT INFORMATION
  Report Type: 
  Country: None (occurrence: None)
  Receive Date: 20101217
  Receipt Date: 20101206
  Transmission Date: 20110411
  Serious: Yes (Other)
  Sender: FDA-Public Use
  Company Number: PHHY2008US37006

PATIENT
  Sex: Female

DRUGS (3)
  1. EXJADE [Suspect]
     Dosage: 1250 MG, QD
     Route: 048
     Dates: start: 20080829, end: 20080919
  2. EXJADE [Suspect]
     Dosage: 500 MG, QD
     Route: 048
     Dates: start: 20081001, end: 20081105
  3. DIURETICS [Concomitant]

REACTIONS (4)
  - BLOOD CREATININE ABNORMAL [None]
  - CONFUSIONAL STATE [None]
  - DIZZINESS [None]
  - HEPATIC ENZYME ABNORMAL [None]
